FAERS Safety Report 5490818-9 (Version None)
Quarter: 2007Q4

REPORT INFORMATION
  Report Type: 
  Country: None (occurrence: None)
  Receive Date: 20071019
  Receipt Date: 20071008
  Transmission Date: 20080405
  Serious: Yes (Death, Other)
  Sender: FDA-Public Use
  Company Number: FR-ROCHE-523983

PATIENT
  Age: 63 Year
  Sex: Male

DRUGS (3)
  1. ROFERON-A [Suspect]
     Route: 058
  2. CLONAZEPAM [Concomitant]
     Indication: MYOCLONUS
  3. VALPROATE SODIUM [Concomitant]
     Indication: MYOCLONUS

REACTIONS (2)
  - MYOCLONUS [None]
  - NEOPLASM MALIGNANT [None]
